FAERS Safety Report 6652401-9 (Version None)
Quarter: 2010Q1

REPORT INFORMATION
  Report Type: 
  Country: None (occurrence: None)
  Receive Date: 20100323
  Receipt Date: 20100308
  Transmission Date: 20100710
  Serious: Yes (Hospitalization)
  Sender: FDA-Public Use
  Company Number: 2010MB000016

PATIENT
  Age: 2 Year
  Sex: Female

DRUGS (1)
  1. MOXATAG [Suspect]
     Indication: EAR INFECTION

REACTIONS (1)
  - STEVENS-JOHNSON SYNDROME [None]
